FAERS Safety Report 8167016-3 (Version None)
Quarter: 2012Q1

REPORT INFORMATION
  Report Type: 
  Country: None (occurrence: None)
  Receive Date: 20120227
  Receipt Date: 20120217
  Transmission Date: 20120608
  Serious: Yes (Other)
  Sender: FDA-Public Use
  Company Number: US-JNJFOC-20120210280

PATIENT
  Age: 59 Year
  Sex: Female
  Weight: 54.43 kg

DRUGS (2)
  1. ASPIRIN [Suspect]
     Indication: PRODUCT USED FOR UNKNOWN INDICATION
  2. XARELTO [Suspect]
     Indication: KNEE ARTHROPLASTY
     Route: 065
     Dates: start: 20120101, end: 20120126

REACTIONS (3)
  - INFECTION [None]
  - CLOSTRIDIAL INFECTION [None]
  - DEEP VEIN THROMBOSIS [None]
